FAERS Safety Report 5940271-3 (Version None)
Quarter: 2008Q4

REPORT INFORMATION
  Report Type: 
  Country: None (occurrence: None)
  Receive Date: 20081104
  Receipt Date: 20081024
  Transmission Date: 20090506
  Serious: Yes (Hospitalization)
  Sender: FDA-Public Use
  Company Number: US-AVENTIS-200820180GDDC

PATIENT
  Age: 68 Year
  Sex: Male
  Weight: 59 kg

DRUGS (5)
  1. DOCETAXEL [Suspect]
     Route: 042
     Dates: start: 20080320, end: 20081002
  2. OXALIPLATIN [Suspect]
     Route: 042
     Dates: start: 20080320, end: 20081002
  3. BEVACIZUMAB [Suspect]
     Route: 042
     Dates: start: 20080320, end: 20081002
  4. HYPNOTICS AND SEDATIVES [Concomitant]
  5. LIPITOR [Concomitant]

REACTIONS (3)
  - INTESTINAL PERFORATION [None]
  - OESOPHAGEAL FISTULA [None]
  - PNEUMONIA [None]
